FAERS Safety Report 12189973 (Version 1)
Quarter: 2016Q1

REPORT INFORMATION
  Report Type: Spontaneous
  Country: US (occurrence: None)
  Receive Date: 20160317
  Receipt Date: 20160317
  Transmission Date: 20160526
  Serious: No
  Sender: FDA-Public Use
  Company Number: None

PATIENT
  Age: 21 Year
  Sex: Female
  Weight: 49.9 kg

DRUGS (8)
  1. ADDERALL XR [Concomitant]
     Active Substance: AMPHETAMINE ASPARTATE\AMPHETAMINE SULFATE\DEXTROAMPHETAMINE SACCHARATE\DEXTROAMPHETAMINE SULFATE
  2. MIRENA [Concomitant]
     Active Substance: LEVONORGESTREL
  3. AMITIZA [Concomitant]
     Active Substance: LUBIPROSTONE
  4. LIDOCAINE PATCHES [Concomitant]
  5. MARINOL [Concomitant]
     Active Substance: DRONABINOL
  6. LIDOCAINE. [Suspect]
     Active Substance: LIDOCAINE
     Indication: ENDOMETRIOSIS
     Dosage: APPLY ONE PATCH BID TWICE DAILY APPLIED TO A SURFACE, USUALLY THE SKIN
     Dates: start: 20160310, end: 20160314
  7. NORETHINDRONE ACETATE. [Concomitant]
     Active Substance: NORETHINDRONE ACETATE
  8. UNISOM SLEEPTABS [Concomitant]
     Active Substance: DOXYLAMINE SUCCINATE

REACTIONS (4)
  - Drug ineffective [None]
  - Product difficult to remove [None]
  - Product substitution issue [None]
  - Product adhesion issue [None]

NARRATIVE: CASE EVENT DATE: 20160310
